FAERS Safety Report 10046561 (Version 4)
Quarter: 2014Q4

REPORT INFORMATION
  Report Type: Spontaneous
  Country: US (occurrence: None)
  Receive Date: 20140326
  Receipt Date: 20141231
  Transmission Date: 20150528
  Serious: Yes (Hospitalization)
  Sender: FDA-Public Use
  Company Number: US-000960

PATIENT
  Age: 45 Year
  Sex: Female
  Weight: 62.6 kg

DRUGS (2)
  1. GATTEX [Suspect]
     Active Substance: TEDUGLUTIDE\WATER
     Indication: SHORT-BOWEL SYNDROME
     Dosage: DF
     Route: 058
     Dates: start: 201304, end: 20140315
  2. SOLUTION FOR PARENTERAL NUTRITION [Concomitant]

REACTIONS (8)
  - Weight decreased [None]
  - Haemorrhoids [None]
  - Dehydration [None]
  - Drug dose omission [None]
  - Weight increased [None]
  - Bowel movement irregularity [None]
  - Injection site bruising [None]
  - Malnutrition [None]

NARRATIVE: CASE EVENT DATE: 2014
